FAERS Safety Report 6008442-8 (Version None)
Quarter: 2008Q4

REPORT INFORMATION
  Report Type: 
  Country: None (occurrence: None)
  Receive Date: 20081217
  Receipt Date: 20081208
  Transmission Date: 20090506
  Serious: Yes (Other)
  Sender: FDA-Public Use
  Company Number: US-AMGEN-QUU280638

PATIENT
  Sex: Male

DRUGS (10)
  1. ENBREL [Suspect]
     Indication: RHEUMATOID ARTHRITIS
     Route: 058
     Dates: start: 20030301
  2. PLAQUENIL [Concomitant]
  3. FOLIC ACID [Concomitant]
  4. RELAFEN [Concomitant]
  5. PREDNISONE TAB [Concomitant]
  6. PLAVIX [Concomitant]
  7. ASPIRIN [Concomitant]
  8. LISINOPRIL [Concomitant]
  9. METOPROLOL TARTRATE [Concomitant]
  10. ZOCOR [Concomitant]

REACTIONS (10)
  - ARTHRALGIA [None]
  - BACK PAIN [None]
  - BLADDER CANCER [None]
  - DRUG DEPENDENCE [None]
  - HAIRY CELL LEUKAEMIA [None]
  - INTERVERTEBRAL DISC DEGENERATION [None]
  - LARGE INTESTINE PERFORATION [None]
  - OSTEOARTHRITIS [None]
  - PERIPHERAL VASCULAR DISORDER [None]
  - RHEUMATOID ARTHRITIS [None]
